FAERS Safety Report 9109277 (Version 5)
Quarter: 2013Q2

REPORT INFORMATION
  Report Type: Report from Study
  Country: CH (occurrence: CH)
  Receive Date: 20130222
  Receipt Date: 20130503
  Transmission Date: 20140414
  Serious: Yes (Hospitalization)
  Sender: FDA-Public Use
  Company Number: CH-PFIZER INC-2013057212

PATIENT
  Age: 53 Year
  Sex: Male

DRUGS (2)
  1. INOTUZUMAB OZOGAMICIN [Suspect]
     Indication: B-CELL LYMPHOMA
     Dosage: 1.5 MG,(0.8 MG/M2) CYCLIC EVERY 28 DAYS
     Route: 042
     Dates: start: 20121228, end: 20121228
  2. TEMSIROLIMUS [Suspect]
     Indication: B-CELL LYMPHOMA
     Dosage: 10 MG, WEEKLY
     Route: 042
     Dates: start: 20121228, end: 20130104

REACTIONS (1)
  - General physical health deterioration [Recovered/Resolved]
